FAERS Safety Report 8581994-X (Version None)
Quarter: 2012Q3

REPORT INFORMATION
  Report Type: 
  Country: None (occurrence: None)
  Receive Date: 20120809
  Receipt Date: 20120803
  Transmission Date: 20120928
  Serious: No
  Sender: FDA-Public Use
  Company Number: US-B.I. PHARMACEUTICALS,INC./RIDGEFIELD-2012-BP-16296PF

PATIENT
  Sex: Female

DRUGS (3)
  1. LYRICA [Suspect]
  2. NEURONTIN [Suspect]
  3. SPIRIVA [Suspect]

REACTIONS (1)
  - FIBROMYALGIA [None]
